FAERS Safety Report 5196821-0 (Version None)
Quarter: 2007Q1

REPORT INFORMATION
  Report Type: 
  Country: None (occurrence: None)
  Receive Date: 20070103
  Receipt Date: 20061226
  Transmission Date: 20070707
  Serious: Yes (Other)
  Sender: FDA-Public Use
  Company Number: US-BRISTOL-MYERS SQUIBB COMPANY-13624978

PATIENT

DRUGS (2)
  1. ABILIFY [Suspect]
  2. SEROQUEL [Concomitant]

REACTIONS (1)
  - BONE MARROW FAILURE [None]
